FAERS Safety Report 14253116 (Version 1)
Quarter: 2017Q4

REPORT INFORMATION
  Report Type: Spontaneous
  Country: SI (occurrence: SI)
  Receive Date: 20171205
  Receipt Date: 20171205
  Transmission Date: 20180321
  Serious: Yes (Other)
  Sender: FDA-Public Use
  Company Number: SI-BAYER-2017-228986

PATIENT
  Age: 75 Year
  Sex: Male

DRUGS (4)
  1. XOFIGO [Suspect]
     Active Substance: RADIUM RA-223 DICHLORIDE
     Indication: PROSTATE CANCER
     Dosage: UNK, CYCLE 1
  2. XOFIGO [Suspect]
     Active Substance: RADIUM RA-223 DICHLORIDE
     Indication: METASTASES TO BONE
     Dosage: UNK, CYCLE 2
  3. XOFIGO [Suspect]
     Active Substance: RADIUM RA-223 DICHLORIDE
     Indication: PROSTATE CANCER
     Dosage: UNK, CYCLE 3
  4. XOFIGO [Suspect]
     Active Substance: RADIUM RA-223 DICHLORIDE
     Indication: PROSTATE CANCER
     Dosage: UNK, CYCLE 4

REACTIONS (10)
  - Oedema peripheral [None]
  - Bone pain [None]
  - Fatigue [None]
  - Dyspnoea [None]
  - Pain [None]
  - Spinal pain [None]
  - Prostatic specific antigen increased [None]
  - Bone lesion [None]
  - Blood alkaline phosphatase increased [None]
  - Anaemia [None]
